FAERS Safety Report 9932502 (Version 1)
Quarter: 2014Q1

REPORT INFORMATION
  Report Type: Report from Study
  Country: US (occurrence: US)
  Receive Date: 20140228
  Receipt Date: 20140228
  Transmission Date: 20141002
  Serious: No
  Sender: FDA-Public Use
  Company Number: US-ABBVIE-13P-163-1177117-00

PATIENT
  Sex: Male
  Weight: 99.88 kg

DRUGS (5)
  1. ANDROGEL [Suspect]
     Indication: BLOOD TESTOSTERONE DECREASED
     Dates: start: 2000, end: 201308
  2. ANDROGEL [Suspect]
     Indication: BLOOD TESTOSTERONE DECREASED
     Dosage: 3-4 PUMP ACTUTATIONS
     Dates: start: 201308, end: 201310
  3. ANDROGEL [Suspect]
     Dosage: 1 PUMP ACTUATION
     Dates: start: 201310, end: 201311
  4. LISINOPRIL [Concomitant]
     Indication: HYPERTENSION
  5. CIALIS [Concomitant]
     Indication: LIBIDO DECREASED

REACTIONS (6)
  - Incorrect dose administered [Unknown]
  - Weight increased [Not Recovered/Not Resolved]
  - Asthenia [Not Recovered/Not Resolved]
  - Libido decreased [Not Recovered/Not Resolved]
  - Dental caries [Recovered/Resolved]
  - Toothache [Recovered/Resolved]
